FAERS Safety Report 9073768 (Version 1)
Quarter: 2013Q1

REPORT INFORMATION
  Report Type: Report from Study
  Country: PR (occurrence: PR)
  Receive Date: 20130129
  Receipt Date: 20130129
  Transmission Date: 20140127
  Serious: Yes (Other)
  Sender: FDA-Public Use
  Company Number: PR-ABBOTT-12P-131-0903434-00

PATIENT
  Sex: Male
  Weight: 88.98 kg

DRUGS (12)
  1. HUMIRA 40 MG/0.8 ML PEN [Suspect]
     Indication: RHEUMATOID ARTHRITIS
     Route: 058
     Dates: start: 2010, end: 20120206
  2. TARKA [Concomitant]
     Indication: HYPERTENSION
     Dosage: 4/240 1 TABLET DAILY
     Route: 048
     Dates: start: 1997
  3. ONGLYZA [Concomitant]
     Indication: DIABETES MELLITUS
     Route: 048
     Dates: start: 201202
  4. AVANDIA [Concomitant]
     Indication: DIABETES MELLITUS
     Route: 048
     Dates: start: 2005, end: 201202
  5. RELAFEN [Concomitant]
     Indication: INTERVERTEBRAL DISC PROTRUSION
     Route: 048
     Dates: start: 1998
  6. PERCOCET [Concomitant]
     Indication: INTERVERTEBRAL DISC PROTRUSION
     Dosage: 5/325 AS NEEDED
     Dates: start: 1998
  7. NEXIUM [Concomitant]
     Indication: DYSPEPSIA
     Dosage: AT BEDTIME
     Route: 048
     Dates: start: 2008
  8. XANTAC [Concomitant]
     Indication: DYSPEPSIA
     Route: 048
     Dates: start: 1997
  9. LORAZEPAM [Concomitant]
     Indication: DEPRESSION
     Route: 048
     Dates: start: 1997
  10. DALMANE [Concomitant]
     Indication: DEPRESSION
     Route: 048
     Dates: start: 1997
  11. PATANASE [Concomitant]
     Indication: SINUSITIS
     Dosage: 2 SPRAYS EACH NOSTRIL TWICE DAILY
     Route: 045
     Dates: start: 201109
  12. VERAMYST [Concomitant]
     Indication: SINUSITIS
     Dosage: 2 SPRAYS EACH NOSTRIL TWICE DAILY
     Dates: start: 201109

REACTIONS (1)
  - Cataract [Not Recovered/Not Resolved]
